FAERS Safety Report 12369103 (Version 1)
Quarter: 2016Q2

REPORT INFORMATION
  Report Type: Spontaneous
  Country: FR (occurrence: FR)
  Receive Date: 20160513
  Receipt Date: 20160513
  Transmission Date: 20160815
  Serious: Yes (Hospitalization)
  Sender: FDA-Public Use
  Company Number: FR-AUROBINDO-AUR-APL-2016-05725

PATIENT
  Age: 53 Year
  Sex: Female

DRUGS (2)
  1. GABAPENTIN ARROW GENERIQUES FILM COATED TABLETS 600MG [Suspect]
     Active Substance: GABAPENTIN
     Indication: PREMEDICATION
     Dosage: 600 MG, DAILY
     Route: 048
     Dates: start: 20140910, end: 20140910
  2. RANITIDINE EG [Suspect]
     Active Substance: RANITIDINE HYDROCHLORIDE
     Indication: PREMEDICATION
     Dosage: UNK
     Route: 048
     Dates: start: 20140910, end: 20140910

REACTIONS (4)
  - Drug hypersensitivity [None]
  - Urticaria [Recovered/Resolved]
  - Pruritus [Recovered/Resolved]
  - Vomiting [Recovered/Resolved]

NARRATIVE: CASE EVENT DATE: 20140910
